FAERS Safety Report 6404608-3 (Version None)
Quarter: 2009Q4

REPORT INFORMATION
  Report Type: 
  Country: None (occurrence: None)
  Receive Date: 20091016
  Receipt Date: 20091007
  Transmission Date: 20100525
  Serious: Yes (Life-Threatening, Hospitalization, Other)
  Sender: FDA-Public Use
  Company Number: US-ELI_LILLY_AND_COMPANY-US200910001564

PATIENT
  Sex: Female

DRUGS (3)
  1. FORTEO [Suspect]
     Indication: OSTEOPOROSIS
     Dosage: 20 UG, DAILY (1/D)
     Dates: start: 20090721, end: 20090901
  2. ZOLOFT [Concomitant]
     Dosage: 50 MG, UNK
  3. WELLBUTRIN [Concomitant]

REACTIONS (5)
  - GENERAL PHYSICAL HEALTH DETERIORATION [None]
  - MENINGITIS BACTERIAL [None]
  - MENINGITIS FUNGAL [None]
  - NERVOUS SYSTEM DISORDER [None]
  - NORMAL PRESSURE HYDROCEPHALUS [None]
